FAERS Safety Report 6154162-9 (Version None)
Quarter: 2009Q2

REPORT INFORMATION
  Report Type: 
  Country: None (occurrence: None)
  Receive Date: 20090414
  Receipt Date: 20090403
  Transmission Date: 20091009
  Serious: Yes (Hospitalization)
  Sender: FDA-Public Use
  Company Number: US-ROCHE-620329

PATIENT
  Sex: Female
  Weight: 83.9 kg

DRUGS (18)
  1. BONIVA [Suspect]
     Indication: OSTEOPOROSIS
     Dosage: DOSE REPORTED AS 3 MG/3ML
     Route: 042
     Dates: start: 20081208, end: 20081208
  2. PLAVIX [Concomitant]
     Route: 048
  3. NADOLOL [Concomitant]
     Route: 048
  4. TRAZODONE HCL [Concomitant]
     Dosage: DOSING FREQUENCY: 1 DOSE FORM HS
     Route: 048
  5. ZOCOR [Concomitant]
     Route: 048
  6. XANAX [Concomitant]
     Route: 048
  7. ASPIRIN [Concomitant]
     Route: 048
  8. HYDROCODONE BITARTRATE [Concomitant]
     Dosage: DOSE: 5/500 MG 1 DOSE FORM EVERY 4 HOURS AS NEEDED
     Route: 048
  9. RESTORIL [Concomitant]
     Dosage: DOSE: 15 MG 1 DOSE FORM QHS AS NEEDED
  10. NOVOLOG [Concomitant]
     Dosage: DOSE: 10 U
     Route: 058
  11. PLENDIL [Concomitant]
     Route: 048
  12. BENICAR [Concomitant]
     Dosage: DOSE: 20/12.5 MG 2 DOSE FORM EVERY AM
  13. CLONIDINE [Concomitant]
     Route: 048
  14. SINGULAIR [Concomitant]
     Route: 048
  15. HUMULIN N [Concomitant]
     Dosage: DOSE: 32 U 11 AM 36 U WITH DINNER 3 Q
  16. ASTELIN [Concomitant]
     Dosage: DSOE: 2 DOSE FORM SCRAP EACH NOSTRIL EVRY DAY
  17. LASIX [Concomitant]
     Route: 048
  18. K-DUR [Concomitant]
     Route: 048

REACTIONS (5)
  - BONE DISORDER [None]
  - CHILLS [None]
  - HEADACHE [None]
  - HEPATIC FAILURE [None]
  - VOMITING [None]
